FAERS Safety Report 6488554-5 (Version None)
Quarter: 2009Q4

REPORT INFORMATION
  Report Type: 
  Country: None (occurrence: None)
  Receive Date: 20091207
  Receipt Date: 20091119
  Transmission Date: 20100525
  Serious: Yes (Hospitalization)
  Sender: FDA-Public Use
  Company Number: DSA_42074_2009

PATIENT
  Age: 89 Year
  Sex: Male

DRUGS (3)
  1. DILTIAZEM HYDROCHLORIDE [Suspect]
     Indication: DRUG USE FOR UNKNOWN INDICATION
     Dosage: 30 MG QD ORAL
     Route: 048
     Dates: start: 20070101
  2. APROVEL [Concomitant]
  3. ASPEGIC 1000 [Concomitant]

REACTIONS (5)
  - DRUG INEFFECTIVE [None]
  - EOSINOPHILIA [None]
  - INTERSTITIAL LUNG DISEASE [None]
  - LUNG INFECTION [None]
  - RASH [None]
